FAERS Safety Report 25919063 (Version 2)
Quarter: 2025Q4

REPORT INFORMATION
  Report Type: Spontaneous
  Country: EU (occurrence: EU)
  Receive Date: 20251014
  Receipt Date: 20251107
  Transmission Date: 20260118
  Serious: Yes (Death)
  Sender: TEVA
  Company Number: EU-TEVA-VS-3380228

PATIENT
  Age: 35 Year
  Sex: Female

DRUGS (1)
  1. GEMCITABINE [Suspect]
     Active Substance: GEMCITABINE
     Indication: Histiocytic sarcoma
     Route: 065

REACTIONS (3)
  - Toxic epidermal necrolysis [Fatal]
  - Systemic lupus erythematosus [Fatal]
  - Corynebacterium sepsis [Fatal]

NARRATIVE: CASE EVENT DATE: 20240101
